FAERS Safety Report 5316394-9 (Version None)
Quarter: 2007Q2

REPORT INFORMATION
  Report Type: 
  Country: None (occurrence: None)
  Receive Date: 20070504
  Receipt Date: 20070108
  Transmission Date: 20071010
  Serious: Yes (Disabling)
  Sender: FDA-Public Use
  Company Number: DK-DENTSPLY-2007-0008-EUR

PATIENT
  Sex: Male

DRUGS (1)
  1. CARBOPLYIN [Suspect]
     Dates: start: 20061012, end: 20061012

REACTIONS (2)
  - FACIAL PALSY [None]
  - PARAESTHESIA [None]
